FAERS Safety Report 18098852 (Version 1)
Quarter: 2020Q3

REPORT INFORMATION
  Report Type: Spontaneous
  Country: US (occurrence: US)
  Receive Date: 20200731
  Receipt Date: 20200731
  Transmission Date: 20201103
  Serious: Yes (Other)
  Sender: FDA-Public Use
  Company Number: US-GLAXOSMITHKLINE-US2020GSK144100

PATIENT
  Age: 41 Year
  Sex: Female
  Weight: 79 kg

DRUGS (9)
  1. GLYCOPYRROLATE. [Concomitant]
     Active Substance: GLYCOPYRROLATE
     Indication: OCULOCARDIAC REFLEX
     Dosage: 0.2 MG
  2. REMIFENTANYL [Concomitant]
     Active Substance: REMIFENTANIL
     Indication: PAIN
     Dosage: UNK (0.3 MCG/KG/MIN)
  3. BUPROPION. [Suspect]
     Active Substance: BUPROPION
     Indication: DEPRESSION
     Dosage: 75 MG, QD
  4. ONDANSETRON [Suspect]
     Active Substance: ONDANSETRON
     Indication: NAUSEA
     Dosage: 4 MG
  5. NARATRIPTAN [Suspect]
     Active Substance: NARATRIPTAN HYDROCHLORIDE
     Indication: MIGRAINE
     Dosage: 1 MG
  6. PROPOFOL. [Suspect]
     Active Substance: PROPOFOL
     Indication: ANAESTHESIA
     Dosage: 150 MG
     Route: 042
  7. SUCCINYLCHOLINE [Concomitant]
     Active Substance: SUCCINYLCHOLINE
     Indication: ANAESTHESIA
     Dosage: 100 MG
  8. ROCURONIUM [Concomitant]
     Active Substance: ROCURONIUM BROMIDE
     Indication: ANAESTHESIA
     Dosage: 10 MG
  9. KETOROLAC [Concomitant]
     Active Substance: KETOROLAC TROMETHAMINE
     Indication: PAIN
     Dosage: 30 MG

REACTIONS (9)
  - Muscle spasticity [Unknown]
  - Blood prolactin increased [Recovered/Resolved]
  - Opisthotonus [Unknown]
  - Blood lactic acid increased [Recovered/Resolved]
  - Fatigue [Unknown]
  - Myalgia [Unknown]
  - Dystonia [Unknown]
  - Neck pain [Unknown]
  - Grimacing [Unknown]
